FAERS Safety Report 7571437-7 (Version None)
Quarter: 2011Q2

REPORT INFORMATION
  Report Type: 
  Country: None (occurrence: None)
  Receive Date: 20110624
  Receipt Date: 20110621
  Transmission Date: 20111010
  Serious: Yes (Life-Threatening, Hospitalization)
  Sender: FDA-Public Use
  Company Number: PHHY2011FR54981

PATIENT
  Sex: Male

DRUGS (6)
  1. CARBOPLATIN [Suspect]
     Indication: LUNG ADENOCARCINOMA METASTATIC
     Dosage: 440 MG OVER 30 MINUTES
     Dates: start: 20110503, end: 20110503
  2. NORVIR [Concomitant]
     Dosage: 1DF DAILY
  3. PREZISTA [Concomitant]
     Dosage: 2 DF, UNK
  4. ISENTRESS [Concomitant]
     Dosage: UNK UKN, UNK
  5. AVASTIN [Suspect]
     Indication: LUNG ADENOCARCINOMA METASTATIC
     Dosage: 100 MG OVER 90 MINUTES
     Dates: start: 20110503, end: 20110503
  6. PACLITAXEL [Suspect]
     Indication: LUNG ADENOCARCINOMA METASTATIC
     Dosage: 360 MG OVER 3 HOURS
     Dates: start: 20110503, end: 20110503

REACTIONS (5)
  - CORONARY ARTERY DISEASE [None]
  - CHEST PAIN [None]
  - MYOCARDIAL INFARCTION [None]
  - PARAESTHESIA [None]
  - MYALGIA [None]
